FAERS Safety Report 11993508 (Version 3)
Quarter: 2016Q1

REPORT INFORMATION
  Report Type: Spontaneous
  Country: US (occurrence: US)
  Receive Date: 20160203
  Receipt Date: 20160224
  Transmission Date: 20160526
  Serious: No
  Sender: FDA-Public Use
  Company Number: US-PFIZER INC-2016034105

PATIENT
  Age: 14 Year
  Sex: Male

DRUGS (6)
  1. ADVIL [Suspect]
     Active Substance: IBUPROFEN
     Indication: PYREXIA
     Dosage: 2 OF 200MG EVERY 4-6 HRS
     Dates: start: 20160119
  2. ADVIL [Suspect]
     Active Substance: IBUPROFEN
     Indication: RHINORRHOEA
  3. ADVIL [Suspect]
     Active Substance: IBUPROFEN
     Indication: PAIN
  4. ADVIL [Suspect]
     Active Substance: IBUPROFEN
     Indication: DIZZINESS
  5. ADVIL [Suspect]
     Active Substance: IBUPROFEN
     Indication: ARTHRITIS
  6. ADVIL [Suspect]
     Active Substance: IBUPROFEN
     Indication: NASOPHARYNGITIS

REACTIONS (4)
  - Condition aggravated [Unknown]
  - Suspected counterfeit product [Unknown]
  - Pyrexia [Recovered/Resolved]
  - Product use issue [Unknown]

NARRATIVE: CASE EVENT DATE: 20160119
